FAERS Safety Report 4745257-2 (Version None)
Quarter: 2005Q3

REPORT INFORMATION
  Report Type: 
  Country: None (occurrence: None)
  Receive Date: 20050812
  Receipt Date: 20050803
  Transmission Date: 20060218
  Serious: Yes (Hospitalization)
  Sender: FDA-Public Use
  Company Number: 2005111758

PATIENT

DRUGS (1)
  1. PHENYTOIN SODIUM [Suspect]
     Indication: ILL-DEFINED DISORDER

REACTIONS (2)
  - NEOPLASM [None]
  - NEUROPATHIC PAIN [None]
